FAERS Safety Report 9839279 (Version 2)
Quarter: 2014Q1

REPORT INFORMATION
  Report Type: Spontaneous
  Country: US (occurrence: US)
  Receive Date: 20140123
  Receipt Date: 20140123
  Transmission Date: 20141002
  Serious: Yes (Hospitalization, Other)
  Sender: FDA-Public Use
  Company Number: US-RB-062627-14

PATIENT
  Sex: Female

DRUGS (9)
  1. SUBOXONE TABLET [Suspect]
     Indication: DRUG DEPENDENCE
     Route: 060
  2. SUBOXONE TABLET [Suspect]
     Indication: PAIN
     Route: 060
  3. SUBOXONE FILM [Suspect]
     Indication: PAIN
     Dosage: SUBOXONE FILM
     Route: 060
  4. BUPRENORPHINE/NALOXONE GENERIC [Suspect]
     Indication: PAIN
     Route: 060
  5. BUPRENORPHINE/NALOXONE GENERIC [Suspect]
     Dosage: FURTHER DOSING DETAILS UNKNOWN; CUTTING TABLETS, TAKING REDUCED DOSES
     Route: 060
     Dates: end: 20140112
  6. BUPRENORPHINE UNSPECIFIED [Suspect]
     Indication: PAIN
     Dosage: DOSING DETAILS UNKNOWN
     Route: 060
  7. VALIUM [Concomitant]
     Indication: ANXIETY
     Route: 048
  8. CELEXA [Concomitant]
     Indication: DEPRESSION
     Dosage: DOSING DETAILS UNKNOWN; TAKING DAILY
     Route: 048
  9. XANAX [Concomitant]
     Indication: CHRONIC OBSTRUCTIVE PULMONARY DISEASE
     Dosage: DOSING DETAILS UNKNOWN
     Route: 065

REACTIONS (18)
  - Intentional overdose [Recovered/Resolved]
  - Intentional underdose [Recovered/Resolved]
  - Off label use [Not Recovered/Not Resolved]
  - Pneumonia [Recovered/Resolved]
  - Grand mal convulsion [Recovered/Resolved]
  - Oral administration complication [Recovered/Resolved]
  - Wrong technique in drug usage process [Recovered/Resolved]
  - Immune system disorder [Not Recovered/Not Resolved]
  - Oropharyngeal pain [Not Recovered/Not Resolved]
  - Ear infection [Not Recovered/Not Resolved]
  - Pain [Not Recovered/Not Resolved]
  - Pelvic pain [Not Recovered/Not Resolved]
  - Malaise [Not Recovered/Not Resolved]
  - Rheumatoid arthritis [Not Recovered/Not Resolved]
  - Mental impairment [Not Recovered/Not Resolved]
  - Dyspnoea [Recovered/Resolved]
  - Dysphagia [Not Recovered/Not Resolved]
  - Suffocation feeling [Not Recovered/Not Resolved]
